FAERS Safety Report 26067448 (Version 1)
Quarter: 2025Q4

REPORT INFORMATION
  Report Type: Spontaneous
  Country: CR (occurrence: CR)
  Receive Date: 20251120
  Receipt Date: 20251120
  Transmission Date: 20260117
  Serious: Yes (Other)
  Sender: SANDOZ
  Company Number: CR-SANDOZ-SDZ2025CR085495

PATIENT
  Age: 42 Year
  Sex: Female

DRUGS (1)
  1. HYRIMOZ [Suspect]
     Active Substance: ADALIMUMAB-ADAZ
     Indication: Product used for unknown indication
     Dosage: UNK
     Route: 065
     Dates: start: 202503

REACTIONS (2)
  - Vaginal haemorrhage [Unknown]
  - Pelvic pain [Unknown]

NARRATIVE: CASE EVENT DATE: 20251103
